FAERS Safety Report 11130316 (Version 2)
Quarter: 2021Q4

REPORT INFORMATION
  Report Type: Report from Study
  Country: BR (occurrence: BR)
  Receive Date: 20150522
  Receipt Date: 20211202
  Transmission Date: 20220303
  Serious: Yes (Disabling, Other)
  Sender: FDA-Public Use
  Company Number: ALCN2015BR003134

PATIENT
  Sex: Female
  Weight: 60 kg

DRUGS (7)
  1. TIMOLOL\TRAVOPROST [Suspect]
     Active Substance: TIMOLOL\TRAVOPROST
     Indication: Intraocular pressure increased
     Dosage: 1 DF, QD
     Route: 047
  2. TIMOLOL\TRAVOPROST [Suspect]
     Active Substance: TIMOLOL\TRAVOPROST
     Indication: Glaucoma
  3. TIMOLOL\TRAVOPROST [Suspect]
     Active Substance: TIMOLOL\TRAVOPROST
     Indication: Intraocular pressure increased
     Route: 065
  4. MAXIDEX OPHTHALMIC//DEXAMETHASONE [Concomitant]
     Indication: Postoperative care
     Dosage: 1 DF, PRN
     Route: 047
     Dates: end: 20150513
  5. MYDRIACYL [Concomitant]
     Active Substance: TROPICAMIDE
     Indication: Postoperative care
     Dosage: 1 DF, PRN
     Route: 047
     Dates: end: 20150513
  6. VIGAMOX [Concomitant]
     Active Substance: MOXIFLOXACIN HYDROCHLORIDE
     Indication: Postoperative care
     Dosage: 1 DF, PRN
     Route: 047
     Dates: end: 20150513
  7. CETROLAC [Concomitant]
     Indication: Postoperative care
     Dosage: 1 DF, PRN
     Route: 047
     Dates: end: 20150513

REACTIONS (7)
  - Gait disturbance [Not Recovered/Not Resolved]
  - Cataract [Recovered/Resolved]
  - Dementia Alzheimer^s type [Not Recovered/Not Resolved]
  - Confusional state [Not Recovered/Not Resolved]
  - Memory impairment [Not Recovered/Not Resolved]
  - Weight bearing difficulty [Not Recovered/Not Resolved]
  - Muscular weakness [Not Recovered/Not Resolved]
